FAERS Safety Report 6075388-9 (Version None)
Quarter: 2009Q1

REPORT INFORMATION
  Report Type: 
  Country: None (occurrence: None)
  Receive Date: 20090212
  Receipt Date: 20090203
  Transmission Date: 20090719
  Serious: Yes (Other)
  Sender: FDA-Public Use
  Company Number: FR-ASTRAZENECA-2009CG00323

PATIENT
  Age: 894 Month
  Sex: Male

DRUGS (2)
  1. ZD6474 CODE NOT BROKEN [Suspect]
     Indication: PROSTATE CANCER METASTATIC
     Route: 048
     Dates: start: 20080913, end: 20090105
  2. CASODEX [Suspect]
     Indication: PROSTATE CANCER METASTATIC
     Route: 048
     Dates: start: 20080913, end: 20090105

REACTIONS (1)
  - CEREBROVASCULAR ACCIDENT [None]
